FAERS Safety Report 5287811-8 (Version None)
Quarter: 2007Q1

REPORT INFORMATION
  Report Type: 
  Country: None (occurrence: None)
  Receive Date: 20070109
  Receipt Date: 20060809
  Transmission Date: 20070707
  Serious: Yes (Hospitalization, Other)
  Sender: FDA-Public Use
  Company Number: PERC20060055

PATIENT
  Age: 43 Year
  Sex: Female

DRUGS (2)
  1. PERCOCET [Suspect]
  2. .. [Concomitant]

REACTIONS (1)
  - DRUG ABUSER [None]
